FAERS Safety Report 21051156 (Version 2)
Quarter: 2022Q3

REPORT INFORMATION
  Report Type: Spontaneous
  Country: CL (occurrence: CL)
  Receive Date: 20220707
  Receipt Date: 20220722
  Transmission Date: 20221026
  Serious: Yes (Other)
  Sender: FDA-Public Use
  Company Number: CL-SUN PHARMACEUTICAL INDUSTRIES LTD-2022RR-343529

PATIENT
  Age: 33 Year
  Sex: Female

DRUGS (1)
  1. GLEEVEC [Suspect]
     Active Substance: IMATINIB MESYLATE
     Indication: Dermatofibrosarcoma protuberans
     Dosage: 400 MILLIGRAM, DAILY
     Route: 065

REACTIONS (2)
  - Muscle spasms [Unknown]
  - Off label use [Unknown]
